FAERS Safety Report 5242774-6 (Version None)
Quarter: 2007Q1

REPORT INFORMATION
  Report Type: 
  Country: None (occurrence: None)
  Receive Date: 20070221
  Receipt Date: 20070208
  Transmission Date: 20070707
  Serious: Yes (Hospitalization)
  Sender: FDA-Public Use
  Company Number: JP-BRISTOL-MYERS SQUIBB COMPANY-13681325

PATIENT
  Age: 2 Year
  Sex: Male

DRUGS (17)
  1. ENDOXAN [Suspect]
     Indication: BONE MARROW CONDITIONING REGIMEN
     Route: 041
     Dates: start: 20050202, end: 20050205
  2. MABLIN [Suspect]
     Indication: BONE MARROW CONDITIONING REGIMEN
     Route: 048
     Dates: start: 20050129, end: 20050201
  3. UROMITEXAN [Concomitant]
     Dates: start: 20050202, end: 20050202
  4. BAKTAR [Concomitant]
     Dates: start: 20050202, end: 20050204
  5. LYMPHOGLOBULINE [Concomitant]
     Dates: start: 20050203, end: 20050206
  6. RIVOTRIL [Concomitant]
     Dates: start: 20050128, end: 20050204
  7. VICCLOX [Concomitant]
     Dates: start: 20050131
  8. KYTRIL [Concomitant]
     Dates: start: 20050202
  9. BACCIDAL [Concomitant]
     Dates: start: 20050202
  10. AMPHOTERICIN B [Concomitant]
     Dates: start: 20050202
  11. POLYMYXIN B SULFATE [Concomitant]
     Dates: start: 20050202
  12. HEPARIN [Concomitant]
     Dates: start: 20050124
  13. SOLU-MEDROL [Concomitant]
     Dates: start: 20050203
  14. SOLITA-T NO. 3 [Concomitant]
     Dates: start: 20050124
  15. MEYLON [Concomitant]
     Dates: start: 20050202
  16. MTX [Concomitant]
  17. FK-506 [Concomitant]

REACTIONS (2)
  - GRAFT VERSUS HOST DISEASE [None]
  - LIVER DISORDER [None]
